FAERS Safety Report 8920653 (Version 2)
Quarter: 2013Q1

REPORT INFORMATION
  Report Type: Spontaneous
  Country: JP (occurrence: JP)
  Receive Date: 20121122
  Receipt Date: 20130205
  Transmission Date: 20140127
  Serious: Yes (Hospitalization, Other)
  Sender: FDA-Public Use
  Company Number: JP-009507513-1112USA01257

PATIENT
  Age: 85 Year
  Sex: Female

DRUGS (2)
  1. FOSAMAC TABLETS 35MG [Suspect]
     Indication: OSTEOPOROSIS
     Dosage: 35 MG, QW
     Route: 048
     Dates: start: 200808, end: 20110322
  2. TERIPARATIDE [Concomitant]
     Route: 058

REACTIONS (6)
  - Femur fracture [Recovered/Resolved]
  - Femur fracture [Unknown]
  - Fall [Unknown]
  - Bone pain [Unknown]
  - Dementia Alzheimer^s type [Unknown]
  - Fall [Unknown]
